FAERS Safety Report 22200762 (Version 2)
Quarter: 2023Q2

REPORT INFORMATION
  Report Type: Spontaneous
  Country: US (occurrence: US)
  Receive Date: 20230412
  Receipt Date: 20230517
  Transmission Date: 20230722
  Serious: No
  Sender: FDA-Public Use
  Company Number: US-BRISTOL-MYERS SQUIBB COMPANY-2023-048791

PATIENT
  Age: 74 Year
  Sex: Male
  Weight: 58.97 kg

DRUGS (1)
  1. POMALYST [Suspect]
     Active Substance: POMALIDOMIDE
     Indication: Plasma cell myeloma
     Dosage: ONGOING
     Route: 048
     Dates: start: 20201007

REACTIONS (7)
  - Laboratory test abnormal [Not Recovered/Not Resolved]
  - Fatigue [Not Recovered/Not Resolved]
  - Movement disorder [Not Recovered/Not Resolved]
  - Hiccups [Not Recovered/Not Resolved]
  - Product dose omission in error [Unknown]
  - Pruritus [Not Recovered/Not Resolved]
  - Abdominal rigidity [Not Recovered/Not Resolved]
